FAERS Safety Report 14148578 (Version 1)
Quarter: 2017Q4

REPORT INFORMATION
  Report Type: Spontaneous
  Country: US (occurrence: US)
  Receive Date: 20171031
  Receipt Date: 20171031
  Transmission Date: 20180321
  Serious: Yes (Other)
  Sender: FDA-Public Use
  Company Number: None

PATIENT
  Age: 28 Year
  Sex: Female

DRUGS (1)
  1. CIPRALEX [Suspect]
     Active Substance: ESCITALOPRAM OXALATE
     Indication: SOCIAL ANXIETY DISORDER

REACTIONS (6)
  - Sexual dysfunction [None]
  - Female orgasmic disorder [None]
  - Sensory loss [None]
  - Loss of libido [None]
  - Anhedonia [None]
  - Apathy [None]

NARRATIVE: CASE EVENT DATE: 20120801
